FAERS Safety Report 6399987-X (Version None)
Quarter: 2009Q4

REPORT INFORMATION
  Report Type: 
  Country: None (occurrence: None)
  Receive Date: 20091014
  Receipt Date: 20091006
  Transmission Date: 20100525
  Serious: Yes (Death, Hospitalization)
  Sender: FDA-Public Use
  Company Number: US-ELI_LILLY_AND_COMPANY-US200910001191

PATIENT
  Sex: Female

DRUGS (3)
  1. BYETTA [Suspect]
     Indication: TYPE 2 DIABETES MELLITUS
     Dosage: UNK, UNKNOWN
     Route: 058
     Dates: start: 20060101
  2. AMARYL [Concomitant]
     Indication: TYPE 2 DIABETES MELLITUS
     Dosage: UNK, UNKNOWN
  3. OTHER ANTIHYPERTENSIVES [Concomitant]
     Dosage: UNK, UNKNOWN

REACTIONS (12)
  - ABDOMINAL DISCOMFORT [None]
  - CATHETERISATION CARDIAC [None]
  - DEATH [None]
  - DRUG INTOLERANCE [None]
  - FEELING ABNORMAL [None]
  - LIVER FUNCTION TEST ABNORMAL [None]
  - MUSCULOSKELETAL PAIN [None]
  - MYOCARDIAL INFARCTION [None]
  - NAUSEA [None]
  - SINUSITIS [None]
  - STRESS [None]
  - WEIGHT DECREASED [None]
